FAERS Safety Report 10883818 (Version 1)
Quarter: 2015Q1

REPORT INFORMATION
  Report Type: Spontaneous
  Country: US (occurrence: US)
  Receive Date: 20150304
  Receipt Date: 20150304
  Transmission Date: 20150721
  Serious: Yes (Other)
  Sender: FDA-Public Use
  Company Number: US-JNJCP-30000266914

PATIENT
  Sex: Female
  Weight: 70 kg

DRUGS (6)
  1. NEUTROGENA HEALTHY SKIN ANTI-WRINKLE CREAM SPF 15 [Suspect]
     Active Substance: ENSULIZOLE\OCTINOXATE
     Indication: SKIN WRINKLING
     Dosage: TWO PEARLS SIZE AMOUNT IN MORNING
     Route: 061
  2. MULTI-VITAMIN WOMAN^S [Concomitant]
     Indication: PRODUCT USED FOR UNKNOWN INDICATION
  3. CALCIUM 1000 MG [Concomitant]
     Indication: PRODUCT USED FOR UNKNOWN INDICATION
  4. IBUPROFEN. [Concomitant]
     Active Substance: IBUPROFEN
     Indication: PRODUCT USED FOR UNKNOWN INDICATION
  5. NEUTROGENA HEALTHY SKIN ANTI-WRINKLE CREAM SPF 15 [Suspect]
     Active Substance: ENSULIZOLE\OCTINOXATE
     Indication: SKIN WRINKLING
     Dosage: TWO PEARLS SIZE AMOUNT IN MORNING
     Route: 061
  6. FISH OIL 1200 MG [Concomitant]
     Indication: PRODUCT USED FOR UNKNOWN INDICATION

REACTIONS (2)
  - Application site discolouration [Not Recovered/Not Resolved]
  - Cyst [Not Recovered/Not Resolved]
